FAERS Safety Report 9234353 (Version 1)
Quarter: 2013Q2

REPORT INFORMATION
  Report Type: Report from Study
  Country: HR (occurrence: HR)
  Receive Date: 20130416
  Receipt Date: 20130416
  Transmission Date: 20140414
  Serious: Yes (Hospitalization, Other)
  Sender: FDA-Public Use
  Company Number: HR-PFIZER INC-2013119227

PATIENT
  Age: 76 Year
  Sex: Female

DRUGS (19)
  1. CISPLATIN [Suspect]
     Indication: GASTRIC CANCER
     Dosage: 75 MG/M2, 1 IN 28 D
     Route: 041
     Dates: start: 20130219, end: 20130219
  2. CISPLATIN [Suspect]
     Dosage: 60 MG/M2, CYCLIC
     Route: 041
     Dates: start: 20130327
  3. S-1 [Suspect]
     Indication: METASTATIC GASTRIC CANCER
     Dosage: 25 MG/M2, 2X/DAY
     Route: 048
     Dates: start: 20130219, end: 20130311
  4. S-1 [Suspect]
     Dosage: 20 MG/M2, UNK
     Route: 048
     Dates: start: 20130327
  5. PANTOPRAZOL [Concomitant]
     Indication: NAUSEA
     Dosage: UNK
     Dates: start: 2012
  6. PANTOPRAZOL [Concomitant]
     Indication: PROPHYLAXIS AGAINST GASTROINTESTINAL ULCER
  7. ALPRAZOLAM [Concomitant]
     Indication: INSOMNIA
     Dosage: UNK
     Dates: start: 2012
  8. LISINOPRIL [Concomitant]
     Indication: HYPERTENSION
     Dosage: UNK
     Dates: start: 2009
  9. ISOPTO TEARS [Concomitant]
     Indication: EYE DISORDER
     Dosage: UNK
     Dates: start: 2012
  10. TIMOLOL [Concomitant]
     Indication: GLAUCOMA
     Dosage: UNK
     Dates: start: 2012
  11. METOCLOPRAMIDE [Concomitant]
     Indication: NAUSEA
     Dosage: AS REQUIRED
     Dates: start: 20130219
  12. ONDANSETRON [Concomitant]
     Indication: PROPHYLAXIS OF NAUSEA AND VOMITING
     Dosage: UNK
     Dates: start: 20130219
  13. RANITIDINE [Concomitant]
     Indication: GASTRITIS PROPHYLAXIS
     Dosage: UNK
     Dates: start: 20130212
  14. KCL [Concomitant]
     Indication: HYPOKALAEMIA
     Dosage: UNK
     Dates: start: 20130312
  15. TRAMADOL [Concomitant]
     Indication: ABDOMINAL PAIN
     Dosage: AS REQUIRED
     Dates: start: 20130313
  16. ENSURE [Concomitant]
     Indication: DECREASED APPETITE
     Dosage: UNK
     Dates: start: 20130316
  17. ERYTHROCYTE [Concomitant]
     Indication: ANAEMIA
     Dosage: AS REQUIRED
     Dates: start: 20130322, end: 20130322
  18. RESOURCE [Concomitant]
     Indication: DECREASED APPETITE
     Dosage: UNK
     Dates: start: 20130115
  19. CIPROFLOXACIN [Concomitant]

REACTIONS (5)
  - Enterocolitis [Unknown]
  - Dehydration [Recovered/Resolved]
  - Hypomagnesaemia [Recovered/Resolved]
  - Platelet count decreased [Unknown]
  - Leukopenia [Unknown]
